FAERS Safety Report 7625447-1 (Version None)
Quarter: 2011Q3

REPORT INFORMATION
  Report Type: 
  Country: None (occurrence: None)
  Receive Date: 20110713
  Receipt Date: 20110628
  Transmission Date: 20111222
  Serious: Yes (Hospitalization, Other)
  Sender: FDA-Public Use
  Company Number: 2011MA008261

PATIENT
  Age: 74 Year
  Sex: Female

DRUGS (4)
  1. VALPROATE SODIUM [Concomitant]
  2. PHENYTOIN [Suspect]
     Indication: CONVULSION
     Dosage: 300 MG;QD
  3. TOPIRAMATE [Concomitant]
  4. LEVETIRACETAM [Concomitant]

REACTIONS (9)
  - TOXICITY TO VARIOUS AGENTS [None]
  - MYOCLONUS [None]
  - BLOOD ALBUMIN DECREASED [None]
  - CONVULSION [None]
  - HEMIPLEGIA [None]
  - ANTICONVULSANT DRUG LEVEL INCREASED [None]
  - QUADRIPARESIS [None]
  - COMA [None]
  - APHASIA [None]
